FAERS Safety Report 12644441 (Version 6)
Quarter: 2019Q1

REPORT INFORMATION
  Report Type: Report from Study
  Country: IT (occurrence: IT)
  Receive Date: 20160811
  Receipt Date: 20190111
  Transmission Date: 20190417
  Serious: Yes (Other)
  Sender: FDA-Public Use
  Company Number: IT-PFIZER INC-2016382330

PATIENT
  Age: 40 Year
  Sex: Female

DRUGS (15)
  1. METHYLPREDNISOLONE SODIUM SUCCINATE. [Suspect]
     Active Substance: METHYLPREDNISOLONE SODIUM SUCCINATE
     Indication: PROPHYLAXIS
     Dosage: 500 MG, 1X/DAY
     Route: 042
     Dates: start: 20160630, end: 20160701
  2. ACICLOVIR [Concomitant]
     Active Substance: ACYCLOVIR
     Dosage: 200 MG, 1X/DAY
     Dates: start: 20180627
  3. ZIRTEC [Concomitant]
     Active Substance: CETIRIZINE HYDROCHLORIDE
     Indication: PROPHYLAXIS
     Dosage: 20 MG, UNK
     Route: 048
     Dates: start: 20160627, end: 20160708
  4. SERTRALINE /01011402/ [Concomitant]
     Active Substance: SERTRALINE HYDROCHLORIDE
     Dosage: 100 MG, 1X/DAY
     Route: 048
     Dates: start: 201312
  5. METHYLPREDNISOLONE SODIUM SUCCINATE. [Suspect]
     Active Substance: METHYLPREDNISOLONE SODIUM SUCCINATE
     Indication: PREMEDICATION
     Dosage: 1000 MG, 1X/DAY
     Route: 042
     Dates: start: 20160627, end: 20160629
  6. PARACETAMOL [Concomitant]
     Active Substance: ACETAMINOPHEN
     Indication: PROPHYLAXIS
     Dosage: 1000 MG, 1X/DAY
     Route: 042
     Dates: start: 20160627, end: 20160701
  7. LEMTRADA [Suspect]
     Active Substance: ALEMTUZUMAB
     Dosage: 12 MG, 1X/DAY
     Route: 041
     Dates: start: 20170704, end: 20170706
  8. SERTRALINE /01011402/ [Concomitant]
     Active Substance: SERTRALINE HYDROCHLORIDE
     Indication: DEPRESSION
     Dosage: 75 MG, UNK
     Route: 048
     Dates: start: 201312
  9. ZIRTEC [Concomitant]
     Active Substance: CETIRIZINE HYDROCHLORIDE
     Dosage: 20 MG, UNK
     Dates: start: 20160626, end: 20160702
  10. LEMTRADA [Suspect]
     Active Substance: ALEMTUZUMAB
     Indication: MULTIPLE SCLEROSIS RELAPSE
     Dosage: 12 MG, DAILY
     Route: 042
     Dates: start: 20160627, end: 20160701
  11. CETIRIZINE [Concomitant]
     Active Substance: CETIRIZINE HYDROCHLORIDE
     Dosage: 20 MG, UNK
     Route: 048
     Dates: start: 20160626, end: 20160807
  12. PANTOPRAZOLE [Concomitant]
     Active Substance: PANTOPRAZOLE
     Indication: PROPHYLAXIS
     Dosage: 20 MG, 1X/DAY
     Route: 048
     Dates: start: 20160628, end: 20160630
  13. LEMTRADA [Suspect]
     Active Substance: ALEMTUZUMAB
     Dosage: UNK
  14. ACICLOVIR [Concomitant]
     Active Substance: ACYCLOVIR
     Indication: PROPHYLAXIS
     Dosage: 400 MG, UNK
     Route: 048
     Dates: start: 20160626, end: 20160801
  15. DELORAZEPAM [Concomitant]
     Active Substance: DELORAZEPAM
     Indication: GENERALISED ANXIETY DISORDER
     Dosage: 10 MG, 1X/DAY
     Route: 048
     Dates: start: 201312

REACTIONS (9)
  - Tooth abscess [Recovered/Resolved]
  - Back pain [Recovered/Resolved]
  - Tooth infection [Recovered/Resolved]
  - Rash maculo-papular [Recovered/Resolved]
  - Vitamin D deficiency [Recovering/Resolving]
  - Asthenia [Recovered/Resolved]
  - Rash maculo-papular [Recovered/Resolved]
  - Facial pain [Recovered/Resolved]
  - Influenza like illness [Recovered/Resolved]

NARRATIVE: CASE EVENT DATE: 20160630
